FAERS Safety Report 4660851-5 (Version None)
Quarter: 2005Q2

REPORT INFORMATION
  Report Type: 
  Country: None (occurrence: None)
  Receive Date: 20050425
  Receipt Date: 20050131
  Transmission Date: 20051028
  Serious: Yes (Other)
  Sender: FDA-Public Use
  Company Number: 16435

PATIENT
  Age: 43 Year
  Sex: Female
  Weight: 48.0813 kg

DRUGS (14)
  1. CARBOPLATIN [Suspect]
     Indication: HEPATIC CANCER METASTATIC
     Dosage: REFER TO DESCRIPTION
     Dates: start: 20040923
  2. TAXOL [Concomitant]
  3. ZOFRAN [Concomitant]
  4. DEXAMETHASONE [Concomitant]
  5. CIMETIDINE [Concomitant]
  6. BENDRYL [Concomitant]
  7. NEURONTIN [Concomitant]
  8. PRILOSEC [Concomitant]
  9. ACYCLOVIR [Concomitant]
  10. ADVAIR DISKUS 100/50 [Concomitant]
  11. COMPAZINE [Concomitant]
  12. OXYCODONE HCL [Concomitant]
  13. ALBUTEROL [Concomitant]
  14. PROCRIT [Concomitant]

REACTIONS (2)
  - PRURITUS [None]
  - SWELLING [None]
